FAERS Safety Report 6105955-5 (Version None)
Quarter: 2009Q1

REPORT INFORMATION
  Report Type: 
  Country: None (occurrence: None)
  Receive Date: 20090306
  Receipt Date: 20080407
  Transmission Date: 20090719
  Serious: No
  Sender: FDA-Public Use
  Company Number: US-BRISTOL-MYERS SQUIBB COMPANY-14141089

PATIENT
  Age: 56 Year
  Sex: Female
  Weight: 68 kg

DRUGS (9)
  1. TAXOL [Suspect]
     Indication: LUNG NEOPLASM MALIGNANT
     Dates: start: 20080407, end: 20080407
  2. ANZEMET [Concomitant]
     Indication: PREMEDICATION
  3. DEXAMETHASONE [Concomitant]
     Indication: PREMEDICATION
  4. BENADRYL [Concomitant]
     Indication: PREMEDICATION
  5. CIMETIDINE [Concomitant]
     Indication: PREMEDICATION
  6. ADVAIR HFA [Concomitant]
  7. ALBUTEROL [Concomitant]
  8. CHANTIX [Concomitant]
  9. TYLENOL [Concomitant]

REACTIONS (2)
  - ADVERSE EVENT [None]
  - DRUG ADMINISTRATION ERROR [None]
